FAERS Safety Report 19442566 (Version 1)
Quarter: 2021Q2

REPORT INFORMATION
  Report Type: Report from Study
  Country: AU (occurrence: AU)
  Receive Date: 20210621
  Receipt Date: 20210621
  Transmission Date: 20210717
  Serious: Yes (Hospitalization)
  Sender: FDA-Public Use
  Company Number: AU-ROCHE-2852246

PATIENT
  Age: 56 Year
  Sex: Female
  Weight: 64 kg

DRUGS (7)
  1. PACLITAXEL. [Suspect]
     Active Substance: PACLITAXEL
     Indication: TRIPLE NEGATIVE BREAST CANCER
     Dosage: FOR 12 WEEKS.?ON 28/APR/2021, SHE RECEIVED MOST RECENT DOSE OF PACLITAXEL (138 MG) PRIOR TO ONSET OF
     Route: 042
     Dates: start: 20210210
  2. PEGFILGRASTIM [Suspect]
     Active Substance: PEGFILGRASTIM
     Dosage: CYCLE 5 VISIT 1
     Route: 058
     Dates: start: 20210603, end: 20210603
  3. CYCLOPHOSPHAMIDE. [Suspect]
     Active Substance: CYCLOPHOSPHAMIDE
     Indication: TRIPLE NEGATIVE BREAST CANCER
     Dosage: FOR 4 DOSES.?ON 02/JUN/2021, SHE RECEIVED MOST RECENT DOSE OF CYCLOPHOSPHAMIDE (1040 MG) PRIOR TO ON
     Route: 042
     Dates: start: 20210505
  4. PEGFILGRASTIM [Suspect]
     Active Substance: PEGFILGRASTIM
     Dosage: CYCLE 4 VISIT 2
     Route: 058
     Dates: start: 20210520, end: 20210520
  5. DOXORUBICIN [Suspect]
     Active Substance: DOXORUBICIN
     Indication: TRIPLE NEGATIVE BREAST CANCER
     Dosage: FOR A TOTAL OF 4 DOSES.?ON 02/JUN/2021, SHE RECEIVED MOST RECENT DOSE OF DOXORUBICIN (104 MG) PRIOR
     Route: 042
     Dates: start: 20210505
  6. PEGFILGRASTIM [Suspect]
     Active Substance: PEGFILGRASTIM
     Indication: TRIPLE NEGATIVE BREAST CANCER
     Dosage: CYCLE 4 VISIT 1
     Route: 058
     Dates: start: 20210506, end: 20210506
  7. ATEZOLIZUMAB. [Suspect]
     Active Substance: ATEZOLIZUMAB
     Indication: TRIPLE NEGATIVE BREAST CANCER
     Dosage: FOR 10 DOSES.?ON 16/JUN/2021, SHE RECEIVED MOST RECENT DOSE OF ATEZOLIZUMAB (840 MG) PRIOR TO ONSET
     Route: 041
     Dates: start: 20210210

REACTIONS (2)
  - Lower respiratory tract infection [Not Recovered/Not Resolved]
  - Pneumonitis [Not Recovered/Not Resolved]

NARRATIVE: CASE EVENT DATE: 20210616
